FAERS Safety Report 7919820-1 (Version None)
Quarter: 2011Q4

REPORT INFORMATION
  Report Type: 
  Country: None (occurrence: None)
  Receive Date: 20111117
  Receipt Date: 20111117
  Transmission Date: 20120403
  Serious: Yes (Life-Threatening, Hospitalization)
  Sender: FDA-Public Use
  Company Number: None

PATIENT
  Age: 65 Year
  Sex: Male
  Weight: 99.79 kg

DRUGS (2)
  1. ATIVAN [Suspect]
     Indication: RESTLESSNESS
     Dosage: LORAZEPAM
     Route: 048
     Dates: start: 20110101, end: 20110404
  2. ZOLOFT [Concomitant]
     Indication: CONFUSIONAL STATE
     Dosage: SERTRALINE
     Route: 048
     Dates: start: 20110324, end: 20110404

REACTIONS (3)
  - CONFUSIONAL STATE [None]
  - DRUG DEPENDENCE [None]
  - SUICIDE ATTEMPT [None]
